FAERS Safety Report 8121860-7 (Version None)
Quarter: 2012Q1

REPORT INFORMATION
  Report Type: 
  Country: None (occurrence: None)
  Receive Date: 20120207
  Receipt Date: 20120207
  Transmission Date: 20120608
  Serious: No
  Sender: FDA-Public Use
  Company Number: None

PATIENT
  Age: 62 Year
  Sex: Male
  Weight: 104.8 kg

DRUGS (1)
  1. RITUXIMAB [Suspect]
     Indication: NON-HODGKIN'S LYMPHOMA
     Dosage: 900 MG ONCE IV
     Route: 042
     Dates: start: 20120130, end: 20120130

REACTIONS (5)
  - PALPITATIONS [None]
  - COLD SWEAT [None]
  - HYPERHIDROSIS [None]
  - ATRIAL FIBRILLATION [None]
  - FLUSHING [None]
